FAERS Safety Report 20982727 (Version 3)
Quarter: 2023Q4

REPORT INFORMATION
  Report Type: Report from Study
  Country: CA (occurrence: CA)
  Receive Date: 20220620
  Receipt Date: 20231017
  Transmission Date: 20240110
  Serious: Yes (Other)
  Sender: FDA-Public Use
  Company Number: CA-TAKEDA-2022TUS040772

PATIENT
  Age: 78 Year
  Sex: Male

DRUGS (6)
  1. VEDOLIZUMAB [Suspect]
     Active Substance: VEDOLIZUMAB
     Indication: Crohn^s disease
     Dosage: 300 MILLIGRAM
     Route: 042
     Dates: start: 20200904
  2. VEDOLIZUMAB [Suspect]
     Active Substance: VEDOLIZUMAB
     Dosage: 300 MILLIGRAM, Q4WEEKS
     Route: 042
     Dates: start: 20220623
  3. VEDOLIZUMAB [Suspect]
     Active Substance: VEDOLIZUMAB
     Dosage: 300 MILLIGRAM, Q4WEEKS
     Route: 042
  4. FOLIC ACID [Concomitant]
     Active Substance: FOLIC ACID
     Dosage: 5 MILLIGRAM
     Route: 048
  5. Salofalk [Concomitant]
     Dosage: 3000 MILLIGRAM
  6. METHOTREXATE [Concomitant]
     Active Substance: METHOTREXATE
     Dosage: 10 MILLIGRAM
     Route: 048

REACTIONS (5)
  - Crohn^s disease [Unknown]
  - Large intestine polyp [Unknown]
  - Small intestine polyp [Unknown]
  - Off label use [Unknown]
  - Stress [Unknown]

NARRATIVE: CASE EVENT DATE: 20220623
